FAERS Safety Report 9936459 (Version 1)
Quarter: 2014Q1

REPORT INFORMATION
  Report Type: Spontaneous
  Country: US (occurrence: US)
  Receive Date: 20140228
  Receipt Date: 20140228
  Transmission Date: 20141002
  Serious: No
  Sender: FDA-Public Use
  Company Number: US-AMGEN-USASP2014005253

PATIENT
  Age: 41 Year
  Sex: Female
  Weight: 86.17 kg

DRUGS (6)
  1. ENBREL [Suspect]
     Indication: PRODUCT USED FOR UNKNOWN INDICATION
     Dosage: 25 MG, 2 TIMES/WK
     Route: 058
  2. AZULFIDINE [Concomitant]
     Dosage: 500 MG, UNK
  3. PREDNISONE [Concomitant]
     Dosage: UNK
  4. IBUPROFEN [Concomitant]
     Dosage: UNK
  5. INDERAL [Concomitant]
     Dosage: 20 MG, UNK
  6. WELLBUTRIN [Concomitant]
     Dosage: 75 MG, UNK

REACTIONS (4)
  - Influenza like illness [Unknown]
  - Fatigue [Unknown]
  - Decreased appetite [Unknown]
  - Nausea [Unknown]
